FAERS Safety Report 5611931-9 (Version None)
Quarter: 2008Q1

REPORT INFORMATION
  Report Type: 
  Country: None (occurrence: None)
  Receive Date: 20080204
  Receipt Date: 20080125
  Transmission Date: 20080703
  Serious: Yes (Hospitalization, Disabling)
  Sender: FDA-Public Use
  Company Number: FR-JNJFOC-20071204666

PATIENT
  Age: 57 Year
  Sex: Male
  Weight: 79 kg

DRUGS (6)
  1. REMICADE [Suspect]
     Dosage: THIRD INFUSION
     Route: 042
  2. REMICADE [Suspect]
     Dosage: SECOND INFUSION AROUND 12-SEP-2007
     Route: 042
  3. REMICADE [Suspect]
     Indication: RHEUMATOID ARTHRITIS
     Dosage: FIRST INFUSION
     Route: 042
  4. NOVATREX [Concomitant]
     Dosage: EVERY TUESDAY EVENING
     Route: 048
  5. CELEBREX [Concomitant]
     Dosage: AT LUNCH
     Route: 048
  6. ARAVA [Concomitant]
     Route: 065

REACTIONS (1)
  - GUILLAIN-BARRE SYNDROME [None]
